FAERS Safety Report 22292417 (Version 2)
Quarter: 2023Q2

REPORT INFORMATION
  Report Type: Report from Study
  Country: US (occurrence: US)
  Receive Date: 20230508
  Receipt Date: 20230605
  Transmission Date: 20230722
  Serious: Yes (Other)
  Sender: FDA-Public Use
  Company Number: US-ABBVIE-4756680

PATIENT
  Age: 81 Year
  Sex: Female

DRUGS (2)
  1. SKYRIZI [Suspect]
     Active Substance: RISANKIZUMAB-RZAA
     Indication: Psoriasis
     Route: 058
     Dates: start: 20220415
  2. SKYRIZI [Suspect]
     Active Substance: RISANKIZUMAB-RZAA
     Route: 058
     Dates: start: 20220413

REACTIONS (2)
  - Knee arthroplasty [Unknown]
  - Knee arthroplasty [Recovering/Resolving]

NARRATIVE: CASE EVENT DATE: 20220501
